FAERS Safety Report 15791716 (Version 1)
Quarter: 2019Q1

REPORT INFORMATION
  Report Type: Spontaneous
  Country: US (occurrence: US)
  Receive Date: 20190105
  Receipt Date: 20190105
  Transmission Date: 20190417
  Serious: Yes (Other)
  Sender: FDA-Public Use
  Company Number: US-AUROBINDO-AUR-APL-2018-064094

PATIENT
  Age: 38 Year
  Sex: Female

DRUGS (1)
  1. PREDNISONE. [Suspect]
     Active Substance: PREDNISONE
     Indication: IMMUNOGLOBULIN G4 RELATED DISEASE
     Dosage: 120 MILLIGRAM, DAILY
     Route: 065

REACTIONS (3)
  - Disease progression [Unknown]
  - Ophthalmic herpes simplex [Recovered/Resolved]
  - Treatment failure [Unknown]
